FAERS Safety Report 12811846 (Version 2)
Quarter: 2017Q1

REPORT INFORMATION
  Report Type: Spontaneous
  Country: JP (occurrence: JP)
  Receive Date: 20161005
  Receipt Date: 20170208
  Transmission Date: 20170428
  Serious: Yes (Hospitalization, Other)
  Sender: FDA-Public Use
  Company Number: JP-PFIZER INC-2016456397

PATIENT
  Age: 55 Year
  Sex: Female

DRUGS (11)
  1. RISPERDAL [Concomitant]
     Active Substance: RISPERIDONE
     Indication: THINKING ABNORMAL
     Dosage: 2 MG, 3X/DAY
     Route: 048
     Dates: start: 20160215
  2. ZYPREXA ZYDIS [Concomitant]
     Active Substance: OLANZAPINE
     Indication: THINKING ABNORMAL
     Dosage: 10 UNK, 2X/DAY
     Route: 048
     Dates: start: 20160215
  3. DEPAS [Concomitant]
     Active Substance: ETIZOLAM
     Indication: MOOD ALTERED
  4. EFFEXOR [Suspect]
     Active Substance: VENLAFAXINE HYDROCHLORIDE
     Dosage: 150 MG, 1X/DAY
     Route: 048
     Dates: start: 20160503, end: 201605
  5. ROHYPNOL [Concomitant]
     Active Substance: FLUNITRAZEPAM
     Indication: INSOMNIA
     Dosage: 2 UNK, 1X/DAY
     Route: 048
     Dates: start: 20160215
  6. TRIHEXYPHENIDYL HYDROCHLORIDE. [Concomitant]
     Active Substance: TRIHEXYPHENIDYL HYDROCHLORIDE
     Indication: PARKINSONISM
     Dosage: 2 MG, 3X/DAY
     Route: 048
     Dates: start: 20160215
  7. ZYPREXA ZYDIS [Concomitant]
     Active Substance: OLANZAPINE
     Indication: MOOD ALTERED
  8. DEPAKENE [Concomitant]
     Active Substance: VALPROIC ACID
     Indication: MOOD ALTERED
     Dosage: 300 MG, 1X/DAY
     Route: 048
     Dates: start: 20160328
  9. DEPAS [Concomitant]
     Active Substance: ETIZOLAM
     Indication: ANXIETY
     Dosage: 1 UNK, 1X/DAY
     Route: 048
     Dates: start: 20160215
  10. EFFEXOR [Suspect]
     Active Substance: VENLAFAXINE HYDROCHLORIDE
     Indication: DEPRESSED MOOD
     Dosage: 37.5 MG, 1X/DAY
     Route: 048
     Dates: start: 20160420, end: 20160426
  11. EFFEXOR [Suspect]
     Active Substance: VENLAFAXINE HYDROCHLORIDE
     Dosage: 75 MG, 1X/DAY
     Route: 048
     Dates: start: 20160427, end: 20160502

REACTIONS (5)
  - Condition aggravated [Recovered/Resolved]
  - Anxiety [Recovered/Resolved]
  - Suicide attempt [Recovered/Resolved]
  - Hallucination, auditory [Unknown]
  - Depressed mood [Recovered/Resolved]

NARRATIVE: CASE EVENT DATE: 20160506
